FAERS Safety Report 15214055 (Version 1)
Quarter: 2018Q3

REPORT INFORMATION
  Report Type: Spontaneous
  Country: US (occurrence: US)
  Receive Date: 20180730
  Receipt Date: 20180730
  Transmission Date: 20181010
  Serious: No
  Sender: FDA-Public Use
  Company Number: US-SA-2018SA201811

PATIENT
  Age: 53 Year
  Sex: Female

DRUGS (15)
  1. DICLOFENAC [Concomitant]
     Active Substance: DICLOFENAC
  2. ATORVASTATIN [Concomitant]
     Active Substance: ATORVASTATIN
  3. PROAIR HFA [Concomitant]
     Active Substance: ALBUTEROL SULFATE
  4. LIDOCAINE. [Concomitant]
     Active Substance: LIDOCAINE
  5. POTASSIUM CHLORIDE. [Concomitant]
     Active Substance: POTASSIUM CHLORIDE
  6. DUPIXENT [Suspect]
     Active Substance: DUPILUMAB
     Indication: DERMATITIS ATOPIC
     Dosage: 600 MG, 1X
     Route: 058
     Dates: start: 20180623, end: 20180623
  7. DUPIXENT [Suspect]
     Active Substance: DUPILUMAB
     Dosage: 300 MG, QW
     Route: 058
     Dates: start: 2018
  8. GABAPENTIN. [Concomitant]
     Active Substance: GABAPENTIN
  9. TIZANIDINE. [Concomitant]
     Active Substance: TIZANIDINE
  10. ARIPIPRAZOLE. [Concomitant]
     Active Substance: ARIPIPRAZOLE
  11. CEVIMELINE. [Concomitant]
     Active Substance: CEVIMELINE
  12. CHANTIX [Concomitant]
     Active Substance: VARENICLINE TARTRATE
  13. CYANOCOBALAMIN. [Concomitant]
     Active Substance: CYANOCOBALAMIN
  14. ASPIRINE [Concomitant]
     Active Substance: ASPIRIN
  15. FERROUS SULFATE. [Concomitant]
     Active Substance: FERROUS SULFATE

REACTIONS (1)
  - Product use issue [Unknown]

NARRATIVE: CASE EVENT DATE: 2018
